FAERS Safety Report 5139911-0 (Version None)
Quarter: 2006Q4

REPORT INFORMATION
  Report Type: 
  Country: None (occurrence: None)
  Receive Date: 20061026
  Receipt Date: 20061026
  Transmission Date: 20070319
  Serious: Yes (Hospitalization)
  Sender: FDA-Public Use
  Company Number: None

PATIENT
  Age: 45 Year
  Sex: Male
  Weight: 49.9 kg

DRUGS (2)
  1. ZITHROMAX [Suspect]
     Indication: MYCOBACTERIUM AVIUM COMPLEX INFECTION
     Dosage: 2 TABS Q WEEK
  2. BACTRIM DS [Suspect]
     Indication: GROIN ABSCESS
     Dosage: BID
     Dates: start: 20060622

REACTIONS (2)
  - CLOSTRIDIUM DIFFICILE COLITIS [None]
  - VOMITING [None]
